FAERS Safety Report 13587755 (Version 1)
Quarter: 2017Q2

REPORT INFORMATION
  Report Type: Spontaneous
  Country: SE (occurrence: SE)
  Receive Date: 20170526
  Receipt Date: 20170526
  Transmission Date: 20170830
  Serious: Yes (Other)
  Sender: FDA-Public Use
  Company Number: SE-CELGENEUS-SWE-20170506684

PATIENT
  Age: 78 Year
  Sex: Male

DRUGS (1)
  1. OTEZLA [Suspect]
     Active Substance: APREMILAST
     Indication: PSORIASIS
     Route: 048
     Dates: start: 201606, end: 201612

REACTIONS (2)
  - Hepatic cancer [Unknown]
  - Hepatic failure [Unknown]

NARRATIVE: CASE EVENT DATE: 201610
